FAERS Safety Report 14160580 (Version 1)
Quarter: 2017Q4

REPORT INFORMATION
  Report Type: Spontaneous
  Country: US (occurrence: US)
  Receive Date: 20171106
  Receipt Date: 20171106
  Transmission Date: 20180321
  Serious: No
  Sender: FDA-Public Use
  Company Number: US-BEH-2017084900

PATIENT
  Sex: Female

DRUGS (1)
  1. HIZENTRA [Suspect]
     Active Substance: HUMAN IMMUNOGLOBULIN G
     Indication: CHRONIC INFLAMMATORY DEMYELINATING POLYRADICULONEUROPATHY
     Dosage: 16 G, DAILY FOR 2 DAYS A WEEK
     Route: 058
     Dates: start: 20170725

REACTIONS (5)
  - Infusion site erythema [Unknown]
  - Infusion site urticaria [Unknown]
  - Infusion site bruising [Unknown]
  - Infusion site pain [Unknown]
  - Infusion site swelling [Unknown]
